FAERS Safety Report 7425811-X (Version None)
Quarter: 2011Q2

REPORT INFORMATION
  Report Type: 
  Country: None (occurrence: None)
  Receive Date: 20110420
  Receipt Date: 20110407
  Transmission Date: 20111010
  Serious: No
  Sender: FDA-Public Use
  Company Number: US-JNJFOC-20110404323

PATIENT
  Sex: Female
  Weight: 51.26 kg

DRUGS (10)
  1. RISPERDAL M TABS [Suspect]
     Indication: SCHIZOPHRENIA
     Route: 048
  2. PRILOSEC [Concomitant]
     Indication: HIATUS HERNIA
     Route: 048
  3. ESTRADIOL PATCH [Concomitant]
     Indication: BLOOD OESTROGEN
     Route: 062
  4. LEXAPRO [Concomitant]
     Indication: DEPRESSION
     Route: 048
  5. ATIVAN [Concomitant]
     Indication: ANXIETY
     Route: 048
  6. RISPERDAL CONSTA [Suspect]
     Indication: SCHIZOPHRENIA
     Route: 030
  7. SINGULAIR [Concomitant]
     Indication: ASTHMA
     Route: 048
  8. LEVOTHYROXINE SODIUM [Concomitant]
     Indication: THYROID DISORDER
     Route: 048
  9. DURAGESIC [Suspect]
     Indication: PAIN
     Route: 062
  10. SINGULAIR [Concomitant]
     Indication: MULTIPLE ALLERGIES
     Route: 048

REACTIONS (4)
  - VISUAL IMPAIRMENT [None]
  - DRUG PRESCRIBING ERROR [None]
  - HYPERACUSIS [None]
  - PAROSMIA [None]
